FAERS Safety Report 25118203 (Version 1)
Quarter: 2025Q1

REPORT INFORMATION
  Report Type: Spontaneous
  Country: CN (occurrence: CN)
  Receive Date: 20250325
  Receipt Date: 20250325
  Transmission Date: 20250408
  Serious: Yes (Other)
  Sender: TAKEDA
  Company Number: CN-TAKEDA-2025TUS028429

PATIENT
  Age: 30 Year
  Sex: Male

DRUGS (1)
  1. ADVATE [Suspect]
     Active Substance: ANTIHEMOPHILIC FACTOR, HUMAN RECOMBINANT
     Indication: Factor VIII deficiency

REACTIONS (4)
  - Gingival bleeding [Unknown]
  - Urethral haemorrhage [Unknown]
  - Anti factor VIII antibody test [Unknown]
  - Joint swelling [Unknown]

NARRATIVE: CASE EVENT DATE: 20250317
